FAERS Safety Report 4268860-5 (Version None)
Quarter: 2004Q1

REPORT INFORMATION
  Report Type: 
  Country: None (occurrence: None)
  Receive Date: 20040109
  Receipt Date: 20031226
  Transmission Date: 20041129
  Serious: Yes (Life-Threatening, Hospitalization)
  Sender: FDA-Public Use
  Company Number: RENA-10712

PATIENT
  Age: 48 Year
  Sex: Female

DRUGS (8)
  1. PHOSBLOCK - 250 MG TABLET [Suspect]
     Indication: HYPERPHOSPHATAEMIA
     Dosage: 2.25 G Q PO
     Route: 048
     Dates: start: 20030820, end: 20031111
  2. NIFEDIPINE [Concomitant]
  3. LOSARTAN [Concomitant]
  4. CALCITRIOL [Concomitant]
  5. BROTIZOLAM [Concomitant]
  6. AMLODIPINE BESYLATE [Concomitant]
  7. EPOETIN BETA [Concomitant]
  8. MAXACALCITOL [Concomitant]

REACTIONS (8)
  - ABDOMINAL DISTENSION [None]
  - DUODENAL ULCER [None]
  - EPIGASTRIC DISCOMFORT [None]
  - HAEMATEMESIS [None]
  - HAEMATOCRIT DECREASED [None]
  - HAEMORRHAGE [None]
  - MELAENA [None]
  - STRESS SYMPTOMS [None]
